FAERS Safety Report 5238544-5 (Version None)
Quarter: 2007Q1

REPORT INFORMATION
  Report Type: 
  Country: None (occurrence: None)
  Receive Date: 20070215
  Receipt Date: 20070212
  Transmission Date: 20070707
  Serious: Yes (Hospitalization, Disabling)
  Sender: FDA-Public Use
  Company Number: PH-GLAXOSMITHKLINE-B0458309A

PATIENT
  Age: 60 Year
  Sex: Male

DRUGS (1)
  1. AVANDAMET [Suspect]
     Route: 065
     Dates: start: 20060101, end: 20060101

REACTIONS (3)
  - CONTUSION [None]
  - GANGRENE [None]
  - ROAD TRAFFIC ACCIDENT [None]
